FAERS Safety Report 5089085-X (Version None)
Quarter: 2006Q3

REPORT INFORMATION
  Report Type: 
  Country: None (occurrence: None)
  Receive Date: 20060825
  Receipt Date: 20060509
  Transmission Date: 20061208
  Serious: Yes (Hospitalization)
  Sender: FDA-Public Use
  Company Number: JP-BAYER-200610603BYL

PATIENT
  Age: 61 Year
  Sex: Male

DRUGS (6)
  1. GLUCOBAY [Suspect]
     Indication: DIABETES MELLITUS
     Dosage: TOTAL DAILY DOSE: 150 MG  UNIT DOSE: 50 MG
     Route: 048
     Dates: start: 20060331, end: 20060426
  2. PREDONINE [Concomitant]
     Dosage: TOTAL DAILY DOSE: 30 MG  UNIT DOSE: 5 MG
     Route: 048
     Dates: start: 20060317
  3. DIOVAN [Concomitant]
     Dosage: TOTAL DAILY DOSE: 40 MG  UNIT DOSE: 40 MG
     Route: 048
     Dates: start: 20060413
  4. ALLOPURINOL [Concomitant]
     Dosage: TOTAL DAILY DOSE: 200 MG  UNIT DOSE: 100 MG
     Route: 048
     Dates: start: 20060418
  5. VFEND [Concomitant]
     Dosage: TOTAL DAILY DOSE: 400 MG  UNIT DOSE: 50 MG
     Route: 048
     Dates: start: 20060420
  6. BASEN [Concomitant]
     Route: 048
     Dates: start: 20060329, end: 20060331

REACTIONS (2)
  - PNEUMATOSIS INTESTINALIS [None]
  - RASH [None]
